FAERS Safety Report 10542109 (Version 4)
Quarter: 2015Q2

REPORT INFORMATION
  Report Type: Spontaneous
  Country: JP (occurrence: JP)
  Receive Date: 20141024
  Receipt Date: 20150430
  Transmission Date: 20150821
  Serious: Yes (Life-Threatening, Hospitalization, Other)
  Sender: FDA-Public Use
  Company Number: JP-009507513-1302JPN010672

PATIENT
  Age: 13 Year
  Sex: Male
  Weight: 40 kg

DRUGS (5)
  1. ESLAX INTRAVENOUS 25MG/2.5ML [Suspect]
     Active Substance: ROCURONIUM BROMIDE
     Indication: NEUROMUSCULAR BLOCKING THERAPY
     Dosage: 30 MG
     Route: 042
     Dates: start: 20120620
  2. ANAPEINE [Suspect]
     Active Substance: ROPIVACAINE HYDROCHLORIDE
     Indication: ANALGESIC THERAPY
     Dosage: DAILY DOSAGE UNKNOWN
     Route: 058
     Dates: start: 20120620
  3. PROPOFOL. [Suspect]
     Active Substance: PROPOFOL
     Indication: SEDATION
     Dosage: 80 MG, ONCE
     Route: 042
     Dates: start: 20120620
  4. ROPION [Suspect]
     Active Substance: FLURBIPROFEN AXETIL
     Indication: ANALGESIC THERAPY
     Dosage: 50 MG, ONCE
     Route: 042
     Dates: start: 20120620
  5. BRIDION INTRAVENOUS 200MG [Suspect]
     Active Substance: SUGAMMADEX
     Indication: NEUROMUSCULAR BLOCKADE REVERSAL
     Dosage: 80 MG ONCE
     Route: 042
     Dates: start: 20120620

REACTIONS (4)
  - Anaphylactic reaction [Recovered/Resolved]
  - Endotracheal intubation [Recovered/Resolved]
  - Intensive care [Recovered/Resolved]
  - Mechanical ventilation [Recovered/Resolved]

NARRATIVE: CASE EVENT DATE: 20120620
